FAERS Safety Report 20004056 (Version 1)
Quarter: 2021Q4

REPORT INFORMATION
  Report Type: Spontaneous
  Country: US (occurrence: US)
  Receive Date: 20211028
  Receipt Date: 20211028
  Transmission Date: 20220303
  Serious: No
  Sender: FDA-Public Use
  Company Number: US-TEVA-2021-US-1968695

PATIENT
  Sex: Female

DRUGS (1)
  1. AUSTEDO [Suspect]
     Active Substance: DEUTETRABENAZINE
     Indication: Huntington^s disease
     Dosage: 36 MILLIGRAM DAILY; TWICE A DAY
     Route: 048

REACTIONS (1)
  - Kleptomania [Not Recovered/Not Resolved]

NARRATIVE: CASE EVENT DATE: 20210101
